FAERS Safety Report 5866651-2 (Version None)
Quarter: 2008Q3

REPORT INFORMATION
  Report Type: 
  Country: None (occurrence: None)
  Receive Date: 20080902
  Receipt Date: 20080821
  Transmission Date: 20090109
  Serious: Yes (Hospitalization, Other)
  Sender: FDA-Public Use
  Company Number: LU-AMGEN-UK301396

PATIENT
  Sex: Male
  Weight: 72 kg

DRUGS (8)
  1. ARANESP [Suspect]
     Indication: RENAL FAILURE CHRONIC
     Route: 042
     Dates: start: 20071205, end: 20080610
  2. IRBESARTAN [Suspect]
     Dates: end: 20080601
  3. TRITACE [Suspect]
     Dates: end: 20080601
  4. CELLCEPT [Concomitant]
     Dates: start: 19970101
  5. PREDNISONE TAB [Concomitant]
     Dates: start: 19970101
  6. PROGRAF [Concomitant]
  7. CRESTOR [Concomitant]
  8. LASIX [Concomitant]

REACTIONS (2)
  - APLASIA PURE RED CELL [None]
  - THERAPEUTIC RESPONSE DECREASED [None]
